FAERS Safety Report 6308285-1 (Version None)
Quarter: 2009Q3

REPORT INFORMATION
  Report Type: 
  Country: None (occurrence: None)
  Receive Date: 20090813
  Receipt Date: 20090811
  Transmission Date: 20100115
  Serious: Yes (Hospitalization)
  Sender: FDA-Public Use
  Company Number: US-MERCK-0908USA01687

PATIENT
  Sex: Female

DRUGS (2)
  1. PRINIVIL [Suspect]
     Route: 048
     Dates: start: 20080101, end: 20090611
  2. HYDROCHLOROTHIAZIDE [Concomitant]
     Route: 048

REACTIONS (3)
  - LIP SWELLING [None]
  - ORAL PRURITUS [None]
  - SWELLING FACE [None]
